FAERS Safety Report 6808577-3 (Version None)
Quarter: 2010Q2

REPORT INFORMATION
  Report Type: 
  Country: None (occurrence: None)
  Receive Date: 20100629
  Receipt Date: 20090717
  Transmission Date: 20101027
  Serious: No
  Sender: FDA-Public Use
  Company Number: US-PFIZER INC-2009244889

PATIENT
  Sex: Male
  Weight: 72.6 kg

DRUGS (5)
  1. VIAGRA [Suspect]
     Dosage: DAILY DOSE: 100 MG
     Dates: start: 20090701
  2. VITAMIN B [Concomitant]
     Dosage: UNK
  3. VITAMIN B1 TAB [Concomitant]
     Dosage: UNK
  4. VITAMIN B-12 [Concomitant]
     Dosage: UNK
  5. TEA, GREEN [Concomitant]
     Dosage: UNK

REACTIONS (2)
  - DRUG INEFFECTIVE [None]
  - FLUSHING [None]
